FAERS Safety Report 12294964 (Version 1)
Quarter: 2016Q2

REPORT INFORMATION
  Report Type: Spontaneous
  Country: US (occurrence: None)
  Receive Date: 20160421
  Receipt Date: 20160421
  Transmission Date: 20160815
  Serious: Yes (Hospitalization)
  Sender: FDA-Public Use
  Company Number: None

PATIENT
  Age: 41 Year
  Sex: Female
  Weight: 45.04 kg

DRUGS (1)
  1. CISPLATIN. [Suspect]
     Active Substance: CISPLATIN
     Dates: end: 20160411

REACTIONS (11)
  - Treatment noncompliance [None]
  - Fatigue [None]
  - Skin irritation [None]
  - Pain of skin [None]
  - Vomiting [None]
  - Hypophagia [None]
  - Oropharyngeal pain [None]
  - Insomnia [None]
  - Mucosal inflammation [None]
  - Nausea [None]
  - Haemoglobin decreased [None]

NARRATIVE: CASE EVENT DATE: 20160415
